FAERS Safety Report 7635725-8 (Version None)
Quarter: 2011Q3

REPORT INFORMATION
  Report Type: 
  Country: None (occurrence: None)
  Receive Date: 20110726
  Receipt Date: 20110720
  Transmission Date: 20111222
  Serious: Yes (Hospitalization)
  Sender: FDA-Public Use
  Company Number: PR-AMGEN-USASP2011016161

PATIENT
  Age: 78 Year
  Sex: Female
  Weight: 48.98 kg

DRUGS (2)
  1. ENBREL [Suspect]
     Indication: RHEUMATOID ARTHRITIS
     Dosage: 50 MG, QWK
     Dates: start: 20031001
  2. METHOTREXATE [Concomitant]
     Dosage: UNK
     Dates: start: 20040101

REACTIONS (1)
  - THYROID CANCER [None]
